FAERS Safety Report 10731349 (Version 12)
Quarter: 2015Q4

REPORT INFORMATION
  Report Type: Report from Study
  Country: KR (occurrence: KR)
  Receive Date: 20150122
  Receipt Date: 20151019
  Transmission Date: 20160304
  Serious: Yes (Life-Threatening, Hospitalization)
  Sender: FDA-Public Use
  Company Number: KR-B.I. PHARMACEUTICALS,INC./RIDGEFIELD-2015-BI-02045RK

PATIENT
  Age: 61 Year
  Sex: Male
  Weight: 76.1 kg

DRUGS (7)
  1. GABAPENTIN. [Suspect]
     Active Substance: GABAPENTIN
     Indication: HERPES ZOSTER
     Route: 065
  2. BIBF 1120 [Suspect]
     Active Substance: NINTEDANIB
     Dosage: 400 MG
     Route: 048
     Dates: start: 20150212, end: 20150405
  3. BIBF 1120 [Suspect]
     Active Substance: NINTEDANIB
     Indication: NON-SMALL CELL LUNG CANCER
     Dosage: 400 MG
     Route: 048
     Dates: start: 20150106, end: 20150111
  4. BIBF 1120 [Suspect]
     Active Substance: NINTEDANIB
     Dosage: 400 MG
     Route: 048
     Dates: start: 20150114, end: 20150205
  5. DOCETAXEL. [Suspect]
     Active Substance: DOCETAXEL
     Indication: NON-SMALL CELL LUNG CANCER
     Dosage: 110 MG
     Route: 042
     Dates: start: 20150105, end: 20150331
  6. BIBF 1120 [Suspect]
     Active Substance: NINTEDANIB
     Dosage: 400 MG
     Route: 048
     Dates: start: 20150413, end: 20150721
  7. BIBF 1120 [Suspect]
     Active Substance: NINTEDANIB
     Dosage: 400 MG
     Route: 048
     Dates: start: 20150731, end: 20151001

REACTIONS (22)
  - Neutropenia [Recovered/Resolved]
  - Nausea [Recovered/Resolved]
  - Nausea [Not Recovered/Not Resolved]
  - Vomiting [Not Recovered/Not Resolved]
  - Diarrhoea [Recovered/Resolved]
  - Neutropenia [Recovered/Resolved]
  - Diarrhoea [Not Recovered/Not Resolved]
  - Diarrhoea [Recovered/Resolved]
  - Fatigue [Recovered/Resolved]
  - Decreased appetite [Recovered/Resolved]
  - Swelling [Recovered/Resolved]
  - Chest pain [Not Recovered/Not Resolved]
  - Onychomadesis [Recovered/Resolved]
  - Neutropenia [Recovered/Resolved]
  - Dizziness [Recovered/Resolved]
  - Speech disorder [Recovered/Resolved]
  - Aphasia [Recovered/Resolved]
  - Ophthalmic herpes zoster [Recovered/Resolved]
  - Haematuria [Recovered/Resolved]
  - Malignant neoplasm progression [Not Recovered/Not Resolved]
  - Hot flush [Not Recovered/Not Resolved]
  - Headache [Recovered/Resolved]

NARRATIVE: CASE EVENT DATE: 20150108
